FAERS Safety Report 11689484 (Version 1)
Quarter: 2015Q4

REPORT INFORMATION
  Report Type: Spontaneous
  Country: US (occurrence: None)
  Receive Date: 20151030
  Receipt Date: 20151030
  Transmission Date: 20160304
  Serious: Yes (Hospitalization)
  Sender: FDA-Public Use
  Company Number: None

PATIENT
  Age: 55 Year
  Sex: Male
  Weight: 74.1 kg

DRUGS (2)
  1. SERTRALINE [Suspect]
     Active Substance: SERTRALINE HYDROCHLORIDE
     Indication: DEPRESSION
     Route: 048
     Dates: start: 20150917, end: 20150922
  2. SULFAMETHOXAZOLE/TRIMETHOPRIM [Suspect]
     Active Substance: SULFAMETHOXAZOLE\TRIMETHOPRIM
     Indication: SCROTAL INFECTION
     Route: 048
     Dates: start: 20150908, end: 20150908

REACTIONS (6)
  - Skin hyperpigmentation [None]
  - Penile ulceration [None]
  - Stevens-Johnson syndrome [None]
  - Drug eruption [None]
  - Pruritus [None]
  - Rash morbilliform [None]

NARRATIVE: CASE EVENT DATE: 20150908
